FAERS Safety Report 21075428 (Version 1)
Quarter: 2022Q3

REPORT INFORMATION
  Report Type: Spontaneous
  Country: US (occurrence: None)
  Receive Date: 20220712
  Receipt Date: 20220712
  Transmission Date: 20221027
  Serious: No
  Sender: FDA-Public Use
  Company Number: None

PATIENT
  Age: 58 Year
  Sex: Female
  Weight: 89.36 kg

DRUGS (1)
  1. BEBTELOVIMAB [Suspect]
     Active Substance: BEBTELOVIMAB
     Dates: start: 20220712, end: 20220712

REACTIONS (10)
  - Dizziness [None]
  - Chest discomfort [None]
  - Chest pain [None]
  - Feeling hot [None]
  - Flushing [None]
  - Blood pressure decreased [None]
  - Treatment noncompliance [None]
  - Pyrexia [None]
  - Dyspnoea [None]
  - Cough [None]

NARRATIVE: CASE EVENT DATE: 20220712
